FAERS Safety Report 10945903 (Version 1)
Quarter: 2015Q1

REPORT INFORMATION
  Report Type: Spontaneous
  Country: US (occurrence: None)
  Receive Date: 20150212
  Receipt Date: 20150212
  Transmission Date: 20150721
  Serious: Yes (Hospitalization)
  Sender: FDA-Public Use
  Company Number: TPA2011A07849

PATIENT
  Age: 66 Year
  Sex: Female
  Weight: 101.06 kg

DRUGS (1)
  1. ULORIC [Suspect]
     Active Substance: FEBUXOSTAT
     Indication: GOUT
     Dosage: 40 MG, 1 IN 1 D, ORAL
     Route: 048
     Dates: start: 20110223, end: 20110318

REACTIONS (1)
  - Cerebrovascular accident [None]
